FAERS Safety Report 9394228 (Version 1)
Quarter: 2013Q3

REPORT INFORMATION
  Report Type: Spontaneous
  Country: JP (occurrence: JP)
  Receive Date: 20130711
  Receipt Date: 20130711
  Transmission Date: 20140515
  Serious: Yes (Other)
  Sender: FDA-Public Use
  Company Number: 2013SP005055

PATIENT
  Sex: Male
  Weight: 35 kg

DRUGS (6)
  1. FOSPHENYTOIN SODIUM [Suspect]
     Indication: STATUS EPILEPTICUS
     Route: 042
     Dates: start: 20130523, end: 20130523
  2. PHENOBAR [Concomitant]
     Indication: EPILEPSY
  3. TEGRETOL [Concomitant]
     Indication: EPILEPSY
  4. RIVOTRIL [Concomitant]
     Indication: EPILEPSY
  5. EXCEGRAN [Concomitant]
  6. GABAPENTIN [Concomitant]

REACTIONS (4)
  - Arrhythmia [Recovering/Resolving]
  - Hypotension [Unknown]
  - Pyrexia [Unknown]
  - Infection [Unknown]
